FAERS Safety Report 9396150 (Version 3)
Quarter: 2013Q3

REPORT INFORMATION
  Report Type: Spontaneous
  Country: US (occurrence: US)
  Receive Date: 20130711
  Receipt Date: 20130726
  Transmission Date: 20140515
  Serious: Yes (Death, Hospitalization, Other)
  Sender: FDA-Public Use
  Company Number: US-BAXTER-2013BAX025680

PATIENT
  Sex: Male

DRUGS (2)
  1. DIANEAL LOW CALCIUM [Suspect]
     Indication: PERITONEAL DIALYSIS
     Route: 033
     Dates: start: 20110901, end: 20130709
  2. DIANEAL LOW CALCIUM [Suspect]
     Route: 033
     Dates: start: 20110901

REACTIONS (5)
  - Sepsis [Fatal]
  - Gastric ulcer perforation [Recovering/Resolving]
  - Gastric ulcer haemorrhage [Recovering/Resolving]
  - Gingivitis [Unknown]
  - Muscular weakness [Unknown]
